FAERS Safety Report 16892985 (Version 1)
Quarter: 2019Q4

REPORT INFORMATION
  Report Type: Spontaneous
  Country: GR (occurrence: GR)
  Receive Date: 20191008
  Receipt Date: 20191008
  Transmission Date: 20200122
  Serious: Yes (Other)
  Sender: FDA-Public Use
  Company Number: GR-ROCHE-2427566

PATIENT
  Age: 35 Year
  Sex: Male

DRUGS (2)
  1. HEMLIBRA [Suspect]
     Active Substance: EMICIZUMAB-KXWH
     Indication: FACTOR VIII DEFICIENCY
     Dosage: FOR FOUR WEEK
     Route: 065
     Dates: start: 20190408
  2. HEMLIBRA [Suspect]
     Active Substance: EMICIZUMAB-KXWH
     Route: 058
     Dates: start: 20190408

REACTIONS (9)
  - Joint range of motion decreased [Unknown]
  - Arthralgia [Recovered/Resolved]
  - Prothrombin time shortened [Unknown]
  - Activated partial thromboplastin time shortened [Unknown]
  - Joint noise [Unknown]
  - Blood fibrinogen increased [Unknown]
  - Joint swelling [Unknown]
  - Haemarthrosis [Unknown]
  - Muscle atrophy [Unknown]
